FAERS Safety Report 4502786-4 (Version None)
Quarter: 2004Q4

REPORT INFORMATION
  Report Type: 
  Country: None (occurrence: None)
  Receive Date: 20041116
  Receipt Date: 20041116
  Transmission Date: 20050328
  Serious: Yes (Hospitalization)
  Sender: FDA-Public Use
  Company Number: None

PATIENT
  Age: 79 Year
  Sex: Male

DRUGS (1)
  1. DIGOXIN [Suspect]
     Indication: ATRIAL FIBRILLATION
     Dosage: 0.25MG Q DAY ORAL
     Route: 048
     Dates: start: 20041020, end: 20041112

REACTIONS (4)
  - ASTHENIA [None]
  - BRADYCARDIA [None]
  - DRUG LEVEL INCREASED [None]
  - FALL [None]
